FAERS Safety Report 12802822 (Version 1)
Quarter: 2016Q4

REPORT INFORMATION
  Report Type: Spontaneous
  Country: US (occurrence: US)
  Receive Date: 20161003
  Receipt Date: 20161003
  Transmission Date: 20170207
  Serious: No
  Sender: FDA-Public Use
  Company Number: US-GLAXOSMITHKLINE-US2016GSK142852

PATIENT
  Age: 52 Year
  Sex: Female

DRUGS (1)
  1. NUCALA [Suspect]
     Active Substance: MEPOLIZUMAB
     Indication: ASTHMA
     Dosage: 100 MG, Z (EVERY 4 WEEKS)
     Route: 042
     Dates: start: 20160921

REACTIONS (5)
  - Screaming [Unknown]
  - Aggression [Unknown]
  - Nightmare [Unknown]
  - Dyskinesia [Unknown]
  - Sleep terror [Unknown]

NARRATIVE: CASE EVENT DATE: 20160921
